FAERS Safety Report 5147002-8 (Version None)
Quarter: 2006Q4

REPORT INFORMATION
  Report Type: 
  Country: None (occurrence: None)
  Receive Date: 20061103
  Receipt Date: 20061026
  Transmission Date: 20070319
  Serious: Yes (Life-Threatening)
  Sender: FDA-Public Use
  Company Number: FABR-11420

PATIENT
  Age: 45 Year
  Sex: Male
  Weight: 66 kg

DRUGS (7)
  1. FABRAZYME [Suspect]
     Indication: FABRY'S DISEASE
     Dosage: 1 MG/KG Q2WKS IV
     Route: 042
     Dates: start: 20060703
  2. FABRAZYME [Suspect]
     Indication: FABRY'S DISEASE
     Dosage: 70 MG Q2WKS IV
     Route: 042
     Dates: start: 20050301, end: 20060227
  3. ALLEGRA [Concomitant]
  4. TYLENOL [Concomitant]
  5. ENALAPRIL MALEATE [Concomitant]
  6. CARBAMAZEPINE [Concomitant]
  7. CALCIUM CARBONATE [Concomitant]

REACTIONS (1)
  - ANAPHYLACTIC REACTION [None]
